FAERS Safety Report 5563762-6 (Version None)
Quarter: 2007Q4

REPORT INFORMATION
  Report Type: 
  Country: None (occurrence: None)
  Receive Date: 20071217
  Receipt Date: 20070829
  Transmission Date: 20080405
  Serious: No
  Sender: FDA-Public Use
  Company Number: US-ASTRAZENECA-2007UW18621

PATIENT
  Age: 66 Year
  Sex: Female
  Weight: 62.7 kg

DRUGS (11)
  1. CRESTOR [Suspect]
     Indication: BLOOD CHOLESTEROL INCREASED
     Route: 048
     Dates: start: 20070729
  2. PREVACID [Concomitant]
  3. SYNTHROID [Concomitant]
     Indication: HYPOTHYROIDISM
     Route: 048
  4. ASPIRIN [Concomitant]
  5. METOPROLOL [Concomitant]
  6. DILANTIN [Concomitant]
     Indication: CONVULSION
     Route: 048
  7. WARFARIN SODIUM [Concomitant]
     Indication: COAGULOPATHY
     Route: 048
  8. FLURAZEPAM [Concomitant]
  9. DOXEPIN HCL [Concomitant]
  10. INHALERS [Concomitant]
  11. VITAMINS [Concomitant]

REACTIONS (1)
  - SKIN DISCOLOURATION [None]
